FAERS Safety Report 9194093 (Version 3)
Quarter: 2013Q4

REPORT INFORMATION
  Report Type: Report from Study
  Country: US (occurrence: US)
  Receive Date: 20130327
  Receipt Date: 20131010
  Transmission Date: 20140711
  Serious: Yes (Hospitalization)
  Sender: FDA-Public Use
  Company Number: US-ELI_LILLY_AND_COMPANY-US201303007334

PATIENT
  Age: 82 Year
  Sex: Female

DRUGS (5)
  1. TERIPARATIDE [Suspect]
     Indication: OSTEOPOROSIS
     Dosage: UNK
     Dates: start: 201302
  2. TERIPARATIDE [Suspect]
     Dosage: UNK UNK, QD
     Dates: start: 201302
  3. TERIPARATIDE [Suspect]
     Dosage: UNK UNK, QD
     Dates: start: 201302
  4. LASIX [Concomitant]
  5. SPIRONOLACTONE [Concomitant]
     Dosage: UNK

REACTIONS (12)
  - Sepsis [Unknown]
  - Limb injury [Unknown]
  - Fall [Unknown]
  - Wrist fracture [Unknown]
  - Neck pain [Not Recovered/Not Resolved]
  - Rheumatoid arthritis [Unknown]
  - Nausea [Unknown]
  - Drug dose omission [Unknown]
  - Fatigue [Unknown]
  - Vision blurred [Unknown]
  - Glassy eyes [Unknown]
  - Drug hypersensitivity [Unknown]
